FAERS Safety Report 19581771 (Version 1)
Quarter: 2021Q3

REPORT INFORMATION
  Report Type: Spontaneous
  Country: EG (occurrence: EG)
  Receive Date: 20210720
  Receipt Date: 20210720
  Transmission Date: 20211014
  Serious: Yes (Hospitalization, Other)
  Sender: FDA-Public Use
  Company Number: EG-HIKMA PHARMACEUTICALS USA INC.-EG-H14001-21-03303

PATIENT
  Sex: Male
  Weight: 80 kg

DRUGS (8)
  1. CALCIUM LEUCOVORIN [Suspect]
     Active Substance: LEUCOVORIN CALCIUM
     Indication: ADENOCARCINOMA
  2. OXAPLATIN [Suspect]
     Active Substance: OXALIPLATIN
     Indication: ADENOCARCINOMA
  3. UTORAL [Suspect]
     Active Substance: FLUOROURACIL
     Indication: OESOPHAGEAL CARCINOMA
     Dosage: UNKNOWN
     Route: 041
  4. CALCIUM LEUCOVORIN [Suspect]
     Active Substance: LEUCOVORIN CALCIUM
     Indication: OESOPHAGEAL CARCINOMA
     Route: 065
  5. EUTAXER [Suspect]
     Active Substance: DOCETAXEL
     Indication: ADENOCARCINOMA
  6. OXAPLATIN [Suspect]
     Active Substance: OXALIPLATIN
     Indication: OESOPHAGEAL CARCINOMA
     Route: 065
  7. EUTAXER [Suspect]
     Active Substance: DOCETAXEL
     Indication: OESOPHAGEAL CARCINOMA
     Route: 065
  8. UTORAL [Suspect]
     Active Substance: FLUOROURACIL
     Indication: ADENOCARCINOMA

REACTIONS (1)
  - Haematemesis [Unknown]

NARRATIVE: CASE EVENT DATE: 20210523
